FAERS Safety Report 4688796-5 (Version None)
Quarter: 2005Q2

REPORT INFORMATION
  Report Type: 
  Country: None (occurrence: None)
  Receive Date: 20050608
  Receipt Date: 20050425
  Transmission Date: 20051028
  Serious: No
  Sender: FDA-Public Use
  Company Number: 2005-BP-06761BP

PATIENT
  Age: 73 Year
  Sex: Male

DRUGS (2)
  1. SPIRIVA [Suspect]
     Indication: BRONCHITIS
     Dosage: 18 MCG (18 MCG, QD), IH
     Route: 055
     Dates: start: 20050101
  2. SINGULAIR (MONTELUKAST) [Concomitant]

REACTIONS (2)
  - DRY MOUTH [None]
  - DRY THROAT [None]
